FAERS Safety Report 7601238 (Version 2)
Quarter: 2014Q1

REPORT INFORMATION
  Report Type: Report from Study
  Country: MX (occurrence: MX)
  Receive Date: 20100922
  Receipt Date: 20140311
  Transmission Date: 20141002
  Serious: Yes (Death, Hospitalization, Other)
  Sender: FDA-Public Use
  Company Number: PHHY2010MX59634

PATIENT
  Age: 78 Year
  Sex: Female

DRUGS (6)
  1. DIOVAN [Suspect]
     Indication: HYPERTENSION
     Dosage: 1 TABLET (160 MG ) PER DAY
     Route: 048
     Dates: start: 20081208
  2. METFORMIN [Concomitant]
     Indication: DIABETES MELLITUS
     Dosage: 2 TABLETS PER DAY
  3. TENORMIN [Concomitant]
     Indication: BLOOD PRESSURE ABNORMAL
     Dosage: 1 TABLET PER DAY
  4. DABIGATRAN ETEXILATE [Concomitant]
     Indication: THROMBOSIS
     Dosage: 2 TABLETS PER DAY
  5. INHIBITRON [Concomitant]
     Dosage: 1 TABLET PER DAY
  6. INSULINE [Concomitant]
     Indication: DIABETES MELLITUS
     Dosage: UNK UKN, UNK

REACTIONS (5)
  - Ileus paralytic [Fatal]
  - Lower limb fracture [Unknown]
  - Fall [Unknown]
  - Renal injury [Unknown]
  - General physical health deterioration [Unknown]
